FAERS Safety Report 4971625-X (Version None)
Quarter: 2006Q2

REPORT INFORMATION
  Report Type: 
  Country: None (occurrence: None)
  Receive Date: 20060413
  Receipt Date: 20060404
  Transmission Date: 20061013
  Serious: Yes (Disabling)
  Sender: FDA-Public Use
  Company Number: JP-JNJFOC-20060205439

PATIENT
  Age: 62 Year
  Sex: Male

DRUGS (12)
  1. TAVANIC [Suspect]
     Route: 048
     Dates: start: 20060104, end: 20060109
  2. ROVAMYCINE [Concomitant]
     Route: 048
  3. PANTESTONE [Concomitant]
     Route: 048
  4. PEVARYL [Concomitant]
     Route: 061
  5. MYCOLOG [Concomitant]
     Route: 061
  6. MYCOLOG [Concomitant]
     Route: 061
  7. MYCOLOG [Concomitant]
     Route: 061
  8. MYCOLOG [Concomitant]
     Route: 061
  9. CYTEAL [Concomitant]
     Route: 061
  10. CYTEAL [Concomitant]
     Route: 061
  11. CYTEAL [Concomitant]
     Route: 061
  12. DIPROSONE [Concomitant]
     Indication: PSORIASIS
     Route: 061

REACTIONS (4)
  - AMNESIA [None]
  - MUSCLE ATROPHY [None]
  - MYALGIA [None]
  - TENDONITIS [None]
